FAERS Safety Report 10559015 (Version 1)
Quarter: 2014Q4

REPORT INFORMATION
  Report Type: Spontaneous
  Country: US (occurrence: US)
  Receive Date: 20141103
  Receipt Date: 20141103
  Transmission Date: 20150529
  Serious: Yes (Hospitalization, Other)
  Sender: FDA-Public Use
  Company Number: US-JNJFOC-20141015167

PATIENT
  Age: 3 Month
  Sex: Male
  Weight: 5.44 kg

DRUGS (1)
  1. INFANTS TYLENOL [Suspect]
     Active Substance: ACETAMINOPHEN
     Indication: PYREXIA
     Route: 048
     Dates: start: 20141021

REACTIONS (9)
  - Choking [Recovering/Resolving]
  - Product quality issue [Unknown]
  - Cyanosis neonatal [Recovering/Resolving]
  - Syringe issue [None]
  - Pulmonary oedema [Recovering/Resolving]
  - Medication error [None]
  - Dyspnoea [Recovering/Resolving]
  - Product quality issue [None]
  - Aspiration [None]

NARRATIVE: CASE EVENT DATE: 201410
